FAERS Safety Report 5704576-3 (Version None)
Quarter: 2008Q2

REPORT INFORMATION
  Report Type: 
  Country: None (occurrence: None)
  Receive Date: 20080411
  Receipt Date: 20080411
  Transmission Date: 20081010
  Serious: Yes (Death)
  Sender: FDA-Public Use
  Company Number: None

PATIENT
  Age: 37 Year
  Sex: Male
  Weight: 62.5 kg

DRUGS (11)
  1. STAVUDINE [Suspect]
     Indication: HIV INFECTION
     Dosage: 40 MG BID PO
     Route: 048
     Dates: start: 20061110, end: 20071122
  2. EFAVIRENZ [Suspect]
     Indication: HIV INFECTION
     Dosage: 600 MG QHS PO
     Route: 048
     Dates: start: 20061110, end: 20071122
  3. LAMIVUDINE [Suspect]
     Indication: HIV INFECTION
     Dosage: 150 MG BID PO
     Route: 048
     Dates: start: 20061110, end: 20071122
  4. COTRIMOXAZOLE [Concomitant]
  5. DIGOXIN [Concomitant]
  6. ENALAPRIL MALEATE [Concomitant]
  7. LASIX [Concomitant]
  8. WARFARIN SODIUM [Concomitant]
  9. SLOW-K [Concomitant]
  10. SPIRONOLACTONE [Concomitant]
  11. VITAMIN B COMPLEX CAP [Concomitant]

REACTIONS (13)
  - ARRHYTHMIA [None]
  - BLOOD ALKALINE PHOSPHATASE INCREASED [None]
  - BLOOD SODIUM DECREASED [None]
  - CARDIAC FAILURE CONGESTIVE [None]
  - CARDIOMYOPATHY [None]
  - CEREBROVASCULAR ACCIDENT [None]
  - DRUG RESISTANCE [None]
  - HAEMOGLOBIN DECREASED [None]
  - IMMUNOSUPPRESSION [None]
  - OPPORTUNISTIC INFECTION [None]
  - RED BLOOD CELL COUNT DECREASED [None]
  - VENTRICULAR ARRHYTHMIA [None]
  - WHITE BLOOD CELL COUNT DECREASED [None]
